FAERS Safety Report 9122335 (Version 2)
Quarter: 2015Q2

REPORT INFORMATION
  Report Type: Report from Study
  Country: US (occurrence: US)
  Receive Date: 20130114
  Receipt Date: 20150428
  Transmission Date: 20150821
  Serious: Yes (Hospitalization)
  Sender: FDA-Public Use
  Company Number: US-009507513-1203USA00724

PATIENT
  Age: 49 Year
  Sex: Female
  Weight: 63.49 kg

DRUGS (34)
  1. MK-5172 [Suspect]
     Active Substance: GRAZOPREVIR ANHYDROUS
     Dosage: 400 MG, QD
     Route: 048
     Dates: start: 20111103, end: 20111105
  2. PEGINTERFERON ALFA-2B [Suspect]
     Active Substance: PEGINTERFERON ALFA-2B
     Indication: HEPATITIS C
     Dosage: 120 MCG/0.5ML
     Route: 058
     Dates: start: 20110921, end: 20111116
  3. PEGINTERFERON ALFA-2B [Suspect]
     Active Substance: PEGINTERFERON ALFA-2B
     Dosage: 120 MCG/0.5ML
     Route: 058
     Dates: start: 20120107, end: 20120107
  4. REBETOL [Suspect]
     Active Substance: RIBAVIRIN
     Indication: HEPATITIS C
     Dosage: 400 MG, UNK
     Route: 048
     Dates: start: 20110921, end: 20110925
  5. HYDROCHLOROTHIAZIDE (+) TRIAMTERENE [Concomitant]
     Indication: HYPERTENSION
     Dosage: 37.5 MG, QD
     Route: 048
     Dates: start: 20111025, end: 20120303
  6. MK-5172 [Suspect]
     Active Substance: GRAZOPREVIR ANHYDROUS
     Indication: HEPATITIS C
     Dosage: 400 MG, QD
     Route: 048
     Dates: start: 20110921, end: 20110925
  7. MK-5172 [Suspect]
     Active Substance: GRAZOPREVIR ANHYDROUS
     Dosage: 400 MG, QD
     Route: 048
     Dates: start: 20111201, end: 20111202
  8. MK-5172 [Suspect]
     Active Substance: GRAZOPREVIR ANHYDROUS
     Dosage: 400 MG, QD
     Route: 048
     Dates: start: 20111213
  9. REBETOL [Suspect]
     Active Substance: RIBAVIRIN
     Dosage: 600 MG, UNK
     Route: 048
     Dates: start: 20111204, end: 20111210
  10. REBETOL [Suspect]
     Active Substance: RIBAVIRIN
     Dosage: 400 MG, UNK
     Route: 048
     Dates: start: 20111213, end: 20120101
  11. REBETOL [Suspect]
     Active Substance: RIBAVIRIN
     Dosage: 600 MG, UNK
     Route: 048
     Dates: start: 20111213, end: 20111213
  12. ALBUTEROL. [Concomitant]
     Active Substance: ALBUTEROL
     Indication: BRONCHITIS CHRONIC
     Dosage: 1 DF, QD
     Route: 055
     Dates: start: 201001
  13. PEGINTERFERON ALFA-2B [Suspect]
     Active Substance: PEGINTERFERON ALFA-2B
     Dosage: 120 MCG/0.5ML
     Route: 058
     Dates: start: 20111129, end: 20111214
  14. REBETOL [Suspect]
     Active Substance: RIBAVIRIN
     Dosage: 600 MG, UNK
     Route: 048
     Dates: start: 20110921, end: 20110922
  15. REBETOL [Suspect]
     Active Substance: RIBAVIRIN
     Dosage: 400 MG, UNK
     Route: 048
     Dates: start: 20111201, end: 20111202
  16. REBETOL [Suspect]
     Active Substance: RIBAVIRIN
     Dosage: 400 MG, UNK
     Route: 048
     Dates: start: 20120304
  17. MK-5172 [Suspect]
     Active Substance: GRAZOPREVIR ANHYDROUS
     Dosage: 400 MG, QD
     Route: 048
     Dates: start: 20111204, end: 20111211
  18. REBETOL [Suspect]
     Active Substance: RIBAVIRIN
     Dosage: 400 MG, UNK
     Route: 048
     Dates: start: 20111204, end: 20111211
  19. REBETOL [Suspect]
     Active Substance: RIBAVIRIN
     Dosage: 400 MG, UNK
     Route: 048
     Dates: start: 20120103, end: 20120110
  20. DILTIAZEM HYDROCHLORIDE. [Concomitant]
     Active Substance: DILTIAZEM HYDROCHLORIDE
     Indication: HYPERTENSION
     Dosage: 120 MG, QD
     Route: 048
     Dates: start: 199701
  21. FLUTICASONE [Concomitant]
     Active Substance: FLUTICASONE\FLUTICASONE PROPIONATE
     Indication: BRONCHITIS CHRONIC
     Dosage: 110 ?G, QD
     Route: 055
     Dates: start: 20110506
  22. MK-5172 [Suspect]
     Active Substance: GRAZOPREVIR ANHYDROUS
     Dosage: 400 MG, QD
     Dates: start: 20110927, end: 20111101
  23. MK-5172 [Suspect]
     Active Substance: GRAZOPREVIR ANHYDROUS
     Dosage: 400 MG, QD
     Route: 048
     Dates: start: 20111107, end: 20111121
  24. MK-5172 [Suspect]
     Active Substance: GRAZOPREVIR ANHYDROUS
     Dosage: 400 MG, QD
     Route: 048
     Dates: start: 20111125, end: 20111129
  25. PEGINTERFERON ALFA-2B [Suspect]
     Active Substance: PEGINTERFERON ALFA-2B
     Dosage: 120 MCG/0.5ML
     Route: 058
     Dates: start: 20111226, end: 20111226
  26. PEGINTERFERON ALFA-2B [Suspect]
     Active Substance: PEGINTERFERON ALFA-2B
     Dosage: 120 MCG/0.5ML
     Route: 058
     Dates: start: 20120111, end: 20120227
  27. REBETOL [Suspect]
     Active Substance: RIBAVIRIN
     Dosage: 400 MG, UNK
     Route: 048
     Dates: start: 20110927, end: 20111121
  28. REBETOL [Suspect]
     Active Substance: RIBAVIRIN
     Dosage: 400 MG, UNK
     Route: 048
     Dates: start: 20111125, end: 20111129
  29. REBETOL [Suspect]
     Active Substance: RIBAVIRIN
     Dosage: 400 MG, UNK
     Route: 048
     Dates: start: 20111214, end: 20120108
  30. REBETOL [Suspect]
     Active Substance: RIBAVIRIN
     Dosage: 400 MG, UNK
     Route: 048
     Dates: start: 20120110, end: 20120227
  31. REBETOL [Suspect]
     Active Substance: RIBAVIRIN
     Dosage: 400 MG, UNK
     Route: 048
     Dates: start: 20120304
  32. REBETOL [Suspect]
     Active Substance: RIBAVIRIN
     Dosage: 600 MG, UNK
     Route: 048
     Dates: start: 20110923, end: 20111121
  33. REBETOL [Suspect]
     Active Substance: RIBAVIRIN
     Dosage: 600 MG, UNK
     Route: 048
     Dates: start: 20111125, end: 20111129
  34. REBETOL [Suspect]
     Active Substance: RIBAVIRIN
     Dosage: 600 MG, UNK
     Route: 048
     Dates: start: 20111201, end: 20111201

REACTIONS (1)
  - Dehydration [Recovered/Resolved]

NARRATIVE: CASE EVENT DATE: 20120301
